FAERS Safety Report 9610950 (Version 2)
Quarter: 2014Q1

REPORT INFORMATION
  Report Type: Report from Study
  Country: NL (occurrence: NL)
  Receive Date: 20131009
  Receipt Date: 20140313
  Transmission Date: 20141002
  Serious: Yes (Death)
  Sender: FDA-Public Use
  Company Number: PHHY2013NL113232

PATIENT
  Age: 63 Year
  Sex: Male

DRUGS (9)
  1. ACLASTA [Suspect]
     Indication: OSTEOPOROSIS
     Dosage: 5 MG ONCE EVERY 52 WEEKS
     Route: 042
     Dates: start: 20111024
  2. ACLASTA [Suspect]
     Dosage: 5 MG ONCE EVERY 52 WEEKS
     Route: 042
     Dates: start: 20130228, end: 20130228
  3. CARBAMAZEPINE [Concomitant]
     Dosage: 200 MG, 2X2
  4. DIOVAN [Concomitant]
     Dosage: 160 MG, 1X1
  5. ZYPREXA [Concomitant]
     Dosage: UNK 1X3
  6. HYDROCHLOROTHIAZIDE [Concomitant]
     Dosage: 12.5 MG, 1X1
  7. METOPROLOL [Concomitant]
     Dosage: 100 MG, 1X1
  8. NIFEDIPINE [Concomitant]
     Dosage: 60 MG, 1X1
  9. SIMVASTATINE [Concomitant]
     Dosage: 30 MG, 1X1

REACTIONS (1)
  - Death [Fatal]
